FAERS Safety Report 20160988 (Version 1)
Quarter: 2021Q4

REPORT INFORMATION
  Report Type: Spontaneous
  Country: IT (occurrence: IT)
  Receive Date: 20211208
  Receipt Date: 20211208
  Transmission Date: 20220303
  Serious: Yes (Hospitalization)
  Sender: FDA-Public Use
  Company Number: IT-TEVA-2021-IT-1984978

PATIENT
  Age: 62 Year
  Sex: Male

DRUGS (7)
  1. ETOPOSIDE [Suspect]
     Active Substance: ETOPOSIDE
     Indication: Plasma cell leukaemia
     Dosage: 200MG/M2 ON DAYS 2-4 (SYSTEMIC)
     Route: 065
     Dates: start: 2017, end: 2017
  2. METHOTREXATE [Suspect]
     Active Substance: METHOTREXATE
     Indication: Plasma cell leukaemia
     Route: 037
     Dates: start: 2017, end: 2017
  3. METHOTREXATE [Suspect]
     Active Substance: METHOTREXATE
     Indication: Metastases to central nervous system
  4. FOTEMUSTINE [Suspect]
     Active Substance: FOTEMUSTINE
     Indication: Plasma cell leukaemia
     Dosage: 300MG/M2 ON DAY 1 (SYSTEMIC)
     Route: 065
     Dates: start: 2017, end: 2017
  5. THIOTEPA [Suspect]
     Active Substance: THIOTEPA
     Indication: Plasma cell leukaemia
     Dosage: 5MG/KG ON DAY 5 (SYSTEMIC)
     Route: 065
     Dates: start: 2017, end: 2017
  6. DEXAMETHASONE [Suspect]
     Active Substance: DEXAMETHASONE
     Indication: Plasma cell leukaemia
     Route: 037
     Dates: start: 2017, end: 2017
  7. DEXAMETHASONE [Suspect]
     Active Substance: DEXAMETHASONE
     Indication: Metastases to central nervous system

REACTIONS (3)
  - Escherichia infection [Recovered/Resolved]
  - Septic shock [Recovered/Resolved]
  - Bone marrow failure [Recovered/Resolved]

NARRATIVE: CASE EVENT DATE: 20170101
